FAERS Safety Report 23603534 (Version 1)
Quarter: 2024Q1

REPORT INFORMATION
  Report Type: Report from Study
  Country: US (occurrence: US)
  Receive Date: 20240307
  Receipt Date: 20240307
  Transmission Date: 20240410
  Serious: Yes (Other)
  Sender: FDA-Public Use
  Company Number: US-ABBVIE-5535750

PATIENT
  Sex: Male
  Weight: 104 kg

DRUGS (16)
  1. VENCLEXTA [Suspect]
     Active Substance: VENETOCLAX
     Indication: Chronic lymphocytic leukaemia
     Route: 048
     Dates: start: 20230706, end: 20230726
  2. VENCLEXTA [Suspect]
     Active Substance: VENETOCLAX
     Indication: Chronic lymphocytic leukaemia
     Dosage: RAMP UP 20 MG CYCLE 1 DAYS 22-28
     Route: 048
     Dates: start: 20230727, end: 20230802
  3. VENCLEXTA [Suspect]
     Active Substance: VENETOCLAX
     Indication: Chronic lymphocytic leukaemia
     Dosage: OBINUTUZUMAB + VENETOCLAX 50 MG  CYCLE 2 DAYS 1-7
     Route: 048
     Dates: start: 20230803, end: 20230809
  4. VENCLEXTA [Suspect]
     Active Substance: VENETOCLAX
     Indication: Chronic lymphocytic leukaemia
     Dosage: 100 MG CYCLE 2 DAYS 8-14
     Route: 048
     Dates: start: 20230810, end: 20230816
  5. VENCLEXTA [Suspect]
     Active Substance: VENETOCLAX
     Indication: Chronic lymphocytic leukaemia
     Dosage: 200 MG CYCLE 2 DAYS 15-21
     Route: 048
     Dates: start: 20230817, end: 20230823
  6. VENCLEXTA [Suspect]
     Active Substance: VENETOCLAX
     Indication: Chronic lymphocytic leukaemia
     Dosage: 400 MG CYCLE 2 DAYS 22-28 AND BEYOND
     Route: 048
     Dates: start: 20230824, end: 20230830
  7. GAZYVA [Suspect]
     Active Substance: OBINUTUZUMAB
     Indication: Chronic lymphocytic leukaemia
     Route: 065
     Dates: start: 20230706
  8. VITAMIN D [Concomitant]
     Active Substance: VITAMIN D NOS
     Indication: Product used for unknown indication
     Dosage: 1.25 MG?TAKE 1 CAPSULE (50,000 UNITS) BY MOUTH ONCE A WEEK - ORAL
     Route: 048
  9. VASCEPA [Concomitant]
     Active Substance: ICOSAPENT ETHYL
     Indication: Product used for unknown indication
     Route: 048
     Dates: start: 20230629
  10. LANTUS [Concomitant]
     Active Substance: INSULIN GLARGINE
     Indication: Product used for unknown indication
     Dosage: 100 UNIT/ML 3 SOPN?INJECT 30 UNITS INTO THE SKIN DAILY (WITH BREAKFAST)
     Route: 058
     Dates: start: 20231012
  11. JENTADUETO [Concomitant]
     Active Substance: LINAGLIPTIN\METFORMIN HYDROCHLORIDE
     Indication: Type 2 diabetes mellitus
     Dosage: 2.5-1000 MG TABS?;TAKE 2.5 MG BY MOUTH 2 TIMES DAILY
     Route: 048
     Dates: start: 20231017
  12. PROCARDIA [Concomitant]
     Active Substance: NIFEDIPINE
     Indication: Blood pressure abnormal
     Dosage: 30 MG 24 HR TABLET; TAKE ONE TABLET BY MOUTH DAILY
     Route: 048
     Dates: start: 20230629
  13. ACTOS [Concomitant]
     Active Substance: PIOGLITAZONE HYDROCHLORIDE
     Indication: Product used for unknown indication
     Dosage: 30 MG TABLET; TAKE 1 TABLET (30 MG) BY MOUTH DAILY
     Route: 048
     Dates: start: 20231012
  14. JANUMET [Concomitant]
     Active Substance: METFORMIN HYDROCHLORIDE\SITAGLIPTIN PHOSPHATE
     Indication: Product used for unknown indication
     Dosage: 50-1000 MG PER TABLET?TAKE 1 TABLET BY MOUTH 2 TIMES DAILY (WITH MEALS)
     Route: 048
     Dates: start: 20231012
  15. ZYLOPRIM [Concomitant]
     Active Substance: ALLOPURINOL
     Indication: Product used for unknown indication
     Dosage: 300 MG;TAKE 1 TABLET (300 MG) BY MOUTH DAILY - ORAL
     Route: 048
     Dates: start: 20230725
  16. LIPITOR [Concomitant]
     Active Substance: ATORVASTATIN CALCIUM
     Indication: Product used for unknown indication
     Dosage: 40 MG; TAKE 1 TABLET (40 MG) BY MOUTH NIGHTLY - ORAL
     Route: 048
     Dates: start: 20230504

REACTIONS (14)
  - Traumatic haemorrhage [Unknown]
  - Epistaxis [Unknown]
  - Asthenia [Unknown]
  - Tumour lysis syndrome [Unknown]
  - COVID-19 [Unknown]
  - Pain in extremity [Unknown]
  - Fall [Unknown]
  - Rectal haemorrhage [Unknown]
  - Paraesthesia [Unknown]
  - Abdominal discomfort [Unknown]
  - Back pain [Unknown]
  - Hypoaesthesia [Unknown]
  - Contusion [Unknown]
  - Diarrhoea [Unknown]

NARRATIVE: CASE EVENT DATE: 20230101
